FAERS Safety Report 6387196-X (Version None)
Quarter: 2009Q4

REPORT INFORMATION
  Report Type: 
  Country: None (occurrence: None)
  Receive Date: 20091002
  Receipt Date: 20090928
  Transmission Date: 20100525
  Serious: Yes (Hospitalization)
  Sender: FDA-Public Use
  Company Number: US-GENENTECH-290173

PATIENT
  Sex: Male
  Weight: 85 kg

DRUGS (11)
  1. BLINDED BORTEZOMIB [Suspect]
     Indication: MULTIPLE MYELOMA
     Dosage: 1395 MG, Q3W
     Route: 042
     Dates: start: 20090609, end: 20090915
  2. BLINDED BEVACIZUMAB [Suspect]
     Indication: MULTIPLE MYELOMA
     Dosage: 1395 MG, Q3W
     Route: 042
     Dates: start: 20090609, end: 20090915
  3. BLINDED PLACEBO [Suspect]
     Indication: MULTIPLE MYELOMA
     Dosage: 1395 MG, Q3W
     Route: 042
     Dates: start: 20090609, end: 20090915
  4. BORTEZOMIB [Suspect]
     Indication: MULTIPLE MYELOMA
     Dosage: 1.3 MG/M2, UNK
     Dates: start: 20090609, end: 20090818
  5. AGGRENOX [Concomitant]
     Indication: DRUG USE FOR UNKNOWN INDICATION
     Dosage: 225 UNK, BID
  6. PROTONIX [Concomitant]
     Indication: DRUG USE FOR UNKNOWN INDICATION
     Dosage: 40 MG, QD
  7. ZOLOFT [Concomitant]
     Indication: DRUG USE FOR UNKNOWN INDICATION
     Dosage: 50 MG, QD
  8. FLOMAX [Concomitant]
     Indication: DRUG USE FOR UNKNOWN INDICATION
     Dosage: 0.4 MG, QD
  9. AMBIEN [Concomitant]
     Indication: DRUG USE FOR UNKNOWN INDICATION
     Dosage: 10 MG, QHS
  10. ZYRTEC [Concomitant]
     Indication: DRUG USE FOR UNKNOWN INDICATION
  11. ACYCLOVIR [Concomitant]
     Indication: DRUG USE FOR UNKNOWN INDICATION

REACTIONS (1)
  - TRANSIENT ISCHAEMIC ATTACK [None]
